FAERS Safety Report 24239071 (Version 3)
Quarter: 2025Q1

REPORT INFORMATION
  Report Type: Spontaneous
  Country: US (occurrence: US)
  Receive Date: 20240822
  Receipt Date: 20250227
  Transmission Date: 20250409
  Serious: No
  Sender: AVADEL CNS PHARMACEUTICALS, LLC
  Company Number: US-AVADEL CNS PHARMACEUTICALS, LLC-2024AVA01034

PATIENT
  Sex: Female

DRUGS (8)
  1. LUMRYZ [Suspect]
     Active Substance: SODIUM OXYBATE
     Indication: Narcolepsy
     Dosage: 6 G, ONCE NIGHTLY
     Route: 048
     Dates: start: 202405, end: 2024
  2. LUMRYZ [Suspect]
     Active Substance: SODIUM OXYBATE
     Indication: Cataplexy
  3. LUMRYZ [Suspect]
     Active Substance: SODIUM OXYBATE
     Indication: Narcolepsy
     Dosage: 7.5 G, ONCE NIGHTLY
     Route: 048
     Dates: start: 2024, end: 2024
  4. LUMRYZ [Suspect]
     Active Substance: SODIUM OXYBATE
     Indication: Cataplexy
  5. LUMRYZ [Suspect]
     Active Substance: SODIUM OXYBATE
     Indication: Narcolepsy
     Dosage: 9 G, ONCE NIGHTLY
     Route: 048
     Dates: start: 2024
  6. LUMRYZ [Suspect]
     Active Substance: SODIUM OXYBATE
     Indication: Cataplexy
  7. SUNOSI [Suspect]
     Active Substance: SOLRIAMFETOL
  8. RITALIN [Suspect]
     Active Substance: METHYLPHENIDATE HYDROCHLORIDE
     Indication: Somnolence

REACTIONS (14)
  - Fatigue [Not Recovered/Not Resolved]
  - Thirst [Not Recovered/Not Resolved]
  - Insomnia [Recovering/Resolving]
  - Taste disorder [Not Recovered/Not Resolved]
  - Initial insomnia [Recovering/Resolving]
  - Therapeutic product effect prolonged [Not Recovered/Not Resolved]
  - Motion sickness [Not Recovered/Not Resolved]
  - Somnolence [Not Recovered/Not Resolved]
  - Anxiety [Not Recovered/Not Resolved]
  - Nausea [Not Recovered/Not Resolved]
  - Agitation [Not Recovered/Not Resolved]
  - Decreased appetite [Not Recovered/Not Resolved]
  - Weight decreased [Not Recovered/Not Resolved]
  - Feeling drunk [Not Recovered/Not Resolved]

NARRATIVE: CASE EVENT DATE: 20240101
